FAERS Safety Report 22029804 (Version 2)
Quarter: 2023Q2

REPORT INFORMATION
  Report Type: Spontaneous
  Country: US (occurrence: US)
  Receive Date: 20230223
  Receipt Date: 20230413
  Transmission Date: 20230721
  Serious: No
  Sender: FDA-Public Use
  Company Number: US-PFIZER INC-202300078030

PATIENT
  Age: 49 Year
  Sex: Male
  Weight: 90.7 kg

DRUGS (1)
  1. PAXLOVID [Suspect]
     Active Substance: NIRMATRELVIR\RITONAVIR
     Indication: COVID-19 treatment
     Dosage: UNK
     Dates: start: 20230218, end: 20230221

REACTIONS (2)
  - Diarrhoea [Recovered/Resolved]
  - Proctalgia [Recovered/Resolved]

NARRATIVE: CASE EVENT DATE: 20230221
